FAERS Safety Report 5703427-0 (Version None)
Quarter: 2008Q2

REPORT INFORMATION
  Report Type: 
  Country: None (occurrence: None)
  Receive Date: 20080411
  Receipt Date: 20080401
  Transmission Date: 20081010
  Serious: Yes (Disabling, Other)
  Sender: FDA-Public Use
  Company Number: US-PFIZER INC-2008028987

PATIENT
  Sex: Female

DRUGS (1)
  1. DEPO-MEDROL [Suspect]

REACTIONS (3)
  - CEREBELLAR ARTERY THROMBOSIS [None]
  - INCORRECT ROUTE OF DRUG ADMINISTRATION [None]
  - RESPIRATORY DISTRESS [None]
